FAERS Safety Report 14787222 (Version 1)
Quarter: 2018Q2

REPORT INFORMATION
  Report Type: Spontaneous
  Country: US (occurrence: US)
  Receive Date: 20180421
  Receipt Date: 20180421
  Transmission Date: 20180711
  Serious: Yes (Other)
  Sender: FDA-Public Use
  Company Number: US-VIFOR (INTERNATIONAL) INC.-VIT-2018-03622

PATIENT
  Sex: Male

DRUGS (21)
  1. VELTASSA [Suspect]
     Active Substance: PATIROMER
     Indication: HYPERKALAEMIA
     Route: 048
     Dates: start: 20160825
  2. LISINOPRIL. [Concomitant]
     Active Substance: LISINOPRIL
  3. SENNOSIDE A+B [Concomitant]
     Active Substance: SENNOSIDES A AND B
  4. SODIUM BICARBONATE. [Concomitant]
     Active Substance: SODIUM BICARBONATE
  5. ALLOPURINOL. [Concomitant]
     Active Substance: ALLOPURINOL
  6. CALCIUM [Concomitant]
     Active Substance: CALCIUM
  7. FISH OIL [Concomitant]
     Active Substance: FISH OIL
  8. FERROUS SULFATE. [Concomitant]
     Active Substance: FERROUS SULFATE
  9. SUPER B COMPLEX/VITAMIN C [Concomitant]
  10. CALCITRIOL. [Concomitant]
     Active Substance: CALCITRIOL
  11. NOVOLOG [Concomitant]
     Active Substance: INSULIN ASPART
  12. TORASEMIDE [Concomitant]
     Active Substance: TORSEMIDE
  13. TUMS [Concomitant]
     Active Substance: CALCIUM CARBONATE
  14. LEVOTHYROXINE SODIUM. [Concomitant]
     Active Substance: LEVOTHYROXINE SODIUM
  15. METOCLOPRAMIDE HYDROCHLORIDE. [Concomitant]
     Active Substance: METOCLOPRAMIDE HYDROCHLORIDE
  16. PROCRIT [Concomitant]
     Active Substance: ERYTHROPOIETIN
  17. SIMVASTATIN. [Concomitant]
     Active Substance: SIMVASTATIN
  18. MAGNESIUM [Concomitant]
     Active Substance: MAGNESIUM
  19. ASPIR-81 [Concomitant]
     Active Substance: ASPIRIN
  20. FUROSEMIDE. [Concomitant]
     Active Substance: FUROSEMIDE
  21. SERTRALINE HYDROCHLORIDE. [Concomitant]
     Active Substance: SERTRALINE HYDROCHLORIDE

REACTIONS (1)
  - Renal failure [Not Recovered/Not Resolved]
